FAERS Safety Report 4680316-4 (Version None)
Quarter: 2005Q2

REPORT INFORMATION
  Report Type: 
  Country: None (occurrence: None)
  Receive Date: 20050602
  Receipt Date: 20050415
  Transmission Date: 20051028
  Serious: Yes (Hospitalization)
  Sender: FDA-Public Use
  Company Number: FR-ABBOTT-05P-056-0297922-00

PATIENT
  Age: 82 Year
  Sex: Male

DRUGS (7)
  1. GOPTEN [Suspect]
     Indication: DRUG USE FOR UNKNOWN INDICATION
     Route: 048
     Dates: start: 19980201, end: 20050129
  2. SIMVASTATIN [Suspect]
     Indication: DRUG USE FOR UNKNOWN INDICATION
     Route: 048
     Dates: start: 19980201, end: 20050213
  3. ACETYLSALICYLATE [Concomitant]
     Indication: DRUG USE FOR UNKNOWN INDICATION
     Route: 048
     Dates: start: 19980201, end: 20050207
  4. AMLODIPINE [Concomitant]
     Indication: DRUG USE FOR UNKNOWN INDICATION
     Route: 048
     Dates: start: 19980201
  5. BISOPROLOL FUMARATE [Concomitant]
     Indication: DRUG USE FOR UNKNOWN INDICATION
     Route: 048
     Dates: start: 19980201
  6. ISOSORBIDE MONONITRATE [Concomitant]
     Indication: DRUG USE FOR UNKNOWN INDICATION
     Route: 048
     Dates: start: 19980201
  7. FLURBIPROFEN [Concomitant]
     Indication: DRUG USE FOR UNKNOWN INDICATION
     Route: 048
     Dates: start: 20050201

REACTIONS (9)
  - BRONCHITIS [None]
  - CHEST PAIN [None]
  - DYSPNOEA EXERTIONAL [None]
  - INFECTION [None]
  - OEDEMA PERIPHERAL [None]
  - PERICARDITIS [None]
  - PLEURAL EFFUSION [None]
  - RENAL ATROPHY [None]
  - RENAL FAILURE [None]
